FAERS Safety Report 4463478-3 (Version None)
Quarter: 2004Q3

REPORT INFORMATION
  Report Type: 
  Country: None (occurrence: None)
  Receive Date: 20040928
  Receipt Date: 20040913
  Transmission Date: 20050211
  Serious: Yes (Hospitalization)
  Sender: FDA-Public Use
  Company Number: 2004-0007483

PATIENT
  Age: 27 Year
  Sex: Female

DRUGS (6)
  1. VIREAD [Suspect]
     Indication: HIV INFECTION
     Dosage: 300  MG, 1 IN 1 D, ORAL
     Route: 048
     Dates: start: 20020905
  2. REYATAZ [Concomitant]
  3. COMBIVIR [Concomitant]
  4. NORVIR [Concomitant]
  5. DARAPRIM [Concomitant]
  6. LEUCOVORIN CALCIUM [Concomitant]

REACTIONS (1)
  - ASEPTIC NECROSIS BONE [None]
